FAERS Safety Report 6193457-X (Version None)
Quarter: 2009Q2

REPORT INFORMATION
  Report Type: 
  Country: None (occurrence: None)
  Receive Date: 20090518
  Receipt Date: 20090508
  Transmission Date: 20091009
  Serious: Yes (Death, Hospitalization)
  Sender: FDA-Public Use
  Company Number: US-AMGEN-QUU346264

PATIENT
  Sex: Female

DRUGS (5)
  1. NEULASTA [Suspect]
     Indication: CHEMOTHERAPY
     Dates: start: 20090430, end: 20090430
  2. UNSPECIFIED ANTINEOPLASTIC AGENT [Concomitant]
     Dates: start: 20090418
  3. REGLAN [Concomitant]
  4. PHENERGAN [Concomitant]
  5. BACTRIM [Concomitant]

REACTIONS (2)
  - DEATH [None]
  - HOSPITALISATION [None]
